FAERS Safety Report 4830751-6 (Version None)
Quarter: 2005Q4

REPORT INFORMATION
  Report Type: 
  Country: None (occurrence: None)
  Receive Date: 20051117
  Receipt Date: 20050930
  Transmission Date: 20060501
  Serious: Yes (Hospitalization)
  Sender: FDA-Public Use
  Company Number: US-MERCK-0510USA01964

PATIENT
  Age: 62 Year
  Sex: Male
  Weight: 84 kg

DRUGS (6)
  1. VIOXX [Suspect]
     Indication: SPONDYLITIS
     Route: 048
     Dates: start: 20001221, end: 20030623
  2. AGGRENOX [Concomitant]
     Route: 065
  3. ASPIRIN [Concomitant]
     Route: 065
  4. CAPTOPRIL MSD [Concomitant]
     Route: 065
  5. CARISOPRODOL [Concomitant]
     Route: 065
  6. LOTENSIN [Concomitant]
     Route: 065

REACTIONS (2)
  - GALLBLADDER DISORDER [None]
  - TRANSIENT ISCHAEMIC ATTACK [None]
